FAERS Safety Report 9299347 (Version 2)
Quarter: 2013Q2

REPORT INFORMATION
  Report Type: Spontaneous
  Country: AU (occurrence: AU)
  Receive Date: 20130520
  Receipt Date: 20130604
  Transmission Date: 20140414
  Serious: Yes (Death, Other)
  Sender: FDA-Public Use
  Company Number: AU-B.I. PHARMACEUTICALS,INC./RIDGEFIELD-2013-AU-00590AU

PATIENT
  Age: 70 Year
  Sex: Male
  Weight: 93.4 kg

DRUGS (17)
  1. PRADAXA [Suspect]
     Indication: CEREBROVASCULAR ACCIDENT PROPHYLAXIS
     Dosage: 300 MG
     Dates: start: 20110909, end: 20120523
  2. PRADAXA [Suspect]
     Indication: ATRIAL FIBRILLATION
  3. ALLOPURINOL [Concomitant]
     Dosage: 90 MG
     Route: 048
  4. ATORVASTATIN [Concomitant]
     Dosage: 80 MG
     Route: 048
  5. CARTIA [Concomitant]
     Dosage: 100 MG
  6. CLOPIDOGREL ACTAVIS [Concomitant]
     Dosage: 75 MG
  7. FRUSEMIDE [Concomitant]
     Indication: BLOOD PRESSURE
     Dosage: 80 MG
     Route: 048
  8. LERCANIDIPINE SANDOZ [Concomitant]
     Indication: BLOOD PRESSURE
     Dosage: 20 MG
     Dates: start: 20120125
  9. LERCANIDIPINE SANDOZ [Concomitant]
     Dosage: 10 MG
     Dates: start: 20120119, end: 20120125
  10. METOPROLOL [Concomitant]
     Indication: HYPERTENSION
     Dosage: 100 MG
     Route: 048
  11. NEXIUM [Concomitant]
     Dosage: 20 MG
  12. PANTOPRAZOLE GENERICHEALTH [Concomitant]
     Dosage: 20 MG
  13. SEREPAX [Concomitant]
     Dosage: 90 MG
  14. COLCHICINE [Concomitant]
     Dosage: 1500 MCG
  15. GLYCERYL TRINITRATE [Concomitant]
     Route: 060
  16. PERINDOPRIL [Concomitant]
     Indication: HYPERTENSION
     Dates: end: 20120119
  17. DIGOXIN [Concomitant]

REACTIONS (2)
  - Cerebrovascular accident [Fatal]
  - Acute myocardial infarction [Unknown]
